FAERS Safety Report 5006512-4 (Version None)
Quarter: 2006Q2

REPORT INFORMATION
  Report Type: 
  Country: None (occurrence: None)
  Receive Date: 20060516
  Receipt Date: 20060427
  Transmission Date: 20061013
  Serious: Yes (Hospitalization)
  Sender: FDA-Public Use
  Company Number: DE200603006191

PATIENT
  Sex: Female
  Weight: 95 kg

DRUGS (2)
  1. GEMCITABINE HYDROCHLORIDE (GEMCITABINE HYDROCHLORIDE UNKNOWN FORMULATI [Suspect]
     Indication: BREAST CANCER
     Dosage: 1980 MG INTRAVENOUS
     Route: 042
     Dates: start: 20060313
  2. DOCETAXEL (DOCETAXEL) [Suspect]
     Indication: BREAST CANCER
     Dosage: 147 MG INTRAVENOUS
     Route: 042
     Dates: start: 20060313

REACTIONS (12)
  - ANAEMIA [None]
  - FLUID INTAKE REDUCED [None]
  - GENERAL PHYSICAL HEALTH DETERIORATION [None]
  - HYPERACUSIS [None]
  - HYPOCALCAEMIA [None]
  - HYPOKALAEMIA [None]
  - MENOPAUSAL SYMPTOMS [None]
  - METRORRHAGIA [None]
  - MUCOSAL INFLAMMATION [None]
  - ORAL INTAKE REDUCED [None]
  - STOMATITIS [None]
  - VISUAL ACUITY REDUCED [None]
